FAERS Safety Report 12762559 (Version 4)
Quarter: 2017Q1

REPORT INFORMATION
  Report Type: Spontaneous
  Country: US (occurrence: US)
  Receive Date: 20160920
  Receipt Date: 20170313
  Transmission Date: 20170428
  Serious: Yes (Hospitalization)
  Sender: FDA-Public Use
  Company Number: US-PFIZER INC-2016435579

PATIENT
  Age: 52 Year
  Sex: Male

DRUGS (3)
  1. DEPO-MEDROL [Suspect]
     Active Substance: METHYLPREDNISOLONE ACETATE
     Dosage: 2ML OF 40 MG/ML
     Route: 014
     Dates: start: 20160829
  2. LIDOCAINE HCL [Suspect]
     Active Substance: LIDOCAINE HYDROCHLORIDE
     Indication: OSTEOARTHRITIS
     Dosage: 2 ML , 1% (2 ML MILLILITRE(S))
     Route: 014
     Dates: start: 20160829
  3. BUPIVACAINE HCL [Suspect]
     Active Substance: BUPIVACAINE HYDROCHLORIDE
     Indication: OSTEOARTHRITIS
     Dosage: 4 ML, 0.25%
     Route: 014
     Dates: start: 20160829

REACTIONS (4)
  - Pain in extremity [Unknown]
  - Injection site pain [Unknown]
  - Product use issue [Unknown]
  - Arthritis bacterial [Unknown]

NARRATIVE: CASE EVENT DATE: 2016
